FAERS Safety Report 24537507 (Version 3)
Quarter: 2025Q2

REPORT INFORMATION
  Report Type: Report from Study
  Country: GB (occurrence: GB)
  Receive Date: 20241023
  Receipt Date: 20250627
  Transmission Date: 20250716
  Serious: Yes (Other)
  Sender: SAMSUNG BIOEPIS
  Company Number: GB-SAMSUNG BIOEPIS-SB-2024-31062

PATIENT
  Sex: Male

DRUGS (2)
  1. PYZCHIVA [Suspect]
     Active Substance: USTEKINUMAB-TTWE
     Indication: Psoriasis
     Dosage: 90MG/1ML;
     Route: 058
     Dates: start: 20241011
  2. STELARA [Suspect]
     Active Substance: USTEKINUMAB
     Indication: Product used for unknown indication

REACTIONS (7)
  - Groin abscess [Not Recovered/Not Resolved]
  - Scrotal abscess [Recovered/Resolved]
  - Testicular abscess [Unknown]
  - Anal abscess [Unknown]
  - Wound [Unknown]
  - Psoriasis [Unknown]
  - Malaise [Unknown]
